FAERS Safety Report 10185803 (Version 2)
Quarter: 2014Q2

REPORT INFORMATION
  Report Type: Report from Study
  Country: US (occurrence: US)
  Receive Date: 20140521
  Receipt Date: 20140613
  Transmission Date: 20141212
  Serious: Yes (Hospitalization)
  Sender: FDA-Public Use
  Company Number: US-GILEAD-2014-0102701

PATIENT
  Age: 82 Year
  Sex: Female

DRUGS (20)
  1. RANOLAZINE [Suspect]
     Indication: ANGINA PECTORIS
     Dosage: 500 MG, BID
     Route: 048
  2. OXYCODONE / ACETAMINOPHEN [Concomitant]
  3. GABAPENTIN [Concomitant]
  4. METOPROLOL TARTRATE [Concomitant]
  5. DIOVAN [Concomitant]
  6. AMITRIPTYLINE HCL [Concomitant]
  7. BUTALBITAL, ACETAMINOPHEN + CAFFEINE [Concomitant]
  8. B-12 DOTS [Concomitant]
  9. ONDANSETRON [Concomitant]
  10. CITALOPRAM HYDROBROMIDE [Concomitant]
  11. LOVASTATIN [Concomitant]
  12. AMLODIPINE BESYLATE [Concomitant]
  13. DIGOXIN [Concomitant]
  14. PLAVIX [Concomitant]
  15. ASPIRIN [Concomitant]
  16. IMDUR [Concomitant]
  17. PROTONIX [Concomitant]
  18. SUCRAFATE [Concomitant]
  19. NITROGLYCERIN [Concomitant]
  20. FISH OIL [Concomitant]

REACTIONS (3)
  - Foot fracture [Unknown]
  - Fall [Unknown]
  - Dizziness [Unknown]
